FAERS Safety Report 18937944 (Version 1)
Quarter: 2021Q1

REPORT INFORMATION
  Report Type: Spontaneous
  Country: HR (occurrence: HR)
  Receive Date: 20210224
  Receipt Date: 20210224
  Transmission Date: 20210420
  Serious: Yes (Other)
  Sender: FDA-Public Use
  Company Number: HR-PFIZER INC-2021190138

PATIENT
  Age: 16 Year
  Sex: Female
  Weight: 53 kg

DRUGS (2)
  1. NORMABEL [Suspect]
     Active Substance: DIAZEPAM
     Dosage: 75 MG, 1X/DAY
     Route: 048
     Dates: start: 20210126, end: 20210126
  2. ZOLOFT [Suspect]
     Active Substance: SERTRALINE HYDROCHLORIDE
     Dosage: 15 DF, 1X/DAY, 1 DF = 1 FILM?COATED TABLET
     Route: 048
     Dates: start: 20210126, end: 20210126

REACTIONS (3)
  - Somnolence [Unknown]
  - Suicide attempt [Unknown]
  - Intentional overdose [Unknown]

NARRATIVE: CASE EVENT DATE: 20210126
